FAERS Safety Report 12657217 (Version 1)
Quarter: 2016Q3

REPORT INFORMATION
  Report Type: Spontaneous
  Country: US (occurrence: US)
  Receive Date: 20160816
  Receipt Date: 20160816
  Transmission Date: 20161109
  Serious: No
  Sender: FDA-Public Use
  Company Number: US-ENDO PHARMACEUTICALS INC.-2016-002654

PATIENT
  Age: 50 Year
  Sex: Female
  Weight: 71.28 kg

DRUGS (2)
  1. LEVOTHYROXINE. [Concomitant]
     Active Substance: LEVOTHYROXINE
     Indication: THYROID DISORDER
  2. SUMAVEL DOSEPRO [Suspect]
     Active Substance: SUMATRIPTAN SUCCINATE
     Indication: MIGRAINE
     Route: 058
     Dates: start: 201604

REACTIONS (4)
  - Device malfunction [Recovered/Resolved]
  - Injection site haemorrhage [Unknown]
  - Injection site injury [Unknown]
  - Migraine [Unknown]

NARRATIVE: CASE EVENT DATE: 201604
